FAERS Safety Report 17288275 (Version 1)
Quarter: 2020Q1

REPORT INFORMATION
  Report Type: Report from Study
  Country: US (occurrence: US)
  Receive Date: 20200120
  Receipt Date: 20200120
  Transmission Date: 20200409
  Serious: Yes (Other)
  Sender: FDA-Public Use
  Company Number: US-HORIZON-KRY-0080-2020

PATIENT
  Age: 40 Year
  Sex: Female

DRUGS (2)
  1. SOLU-MEDROL [Concomitant]
     Active Substance: METHYLPREDNISOLONE SODIUM SUCCINATE
     Indication: PREMEDICATION
  2. KRYSTEXXA [Suspect]
     Active Substance: PEGLOTICASE
     Indication: GOUT
     Dosage: 8MG EVERY 2 WEEKS
     Route: 042
     Dates: start: 20191203

REACTIONS (4)
  - Pruritus [Unknown]
  - Oral disorder [Unknown]
  - Therapeutic response decreased [Unknown]
  - Blood pressure systolic increased [Recovered/Resolved]

NARRATIVE: CASE EVENT DATE: 20200114
